FAERS Safety Report 19382169 (Version 2)
Quarter: 2022Q2

REPORT INFORMATION
  Report Type: Spontaneous
  Country: US (occurrence: US)
  Receive Date: 20210607
  Receipt Date: 20220419
  Transmission Date: 20220721
  Serious: No
  Sender: FDA-Public Use
  Company Number: US-PFIZER INC-2021264275

PATIENT
  Age: 84 Year
  Sex: Female
  Weight: 77.11 kg

DRUGS (2)
  1. CELECOXIB [Suspect]
     Active Substance: CELECOXIB
     Dosage: 200 MG, 1X/DAY
     Route: 048
  2. TOVIAZ [Concomitant]
     Active Substance: FESOTERODINE FUMARATE
     Indication: Bladder dilatation
     Dosage: 4 MG, 1X/DAY (4MG ONCE A DAY BY MOUTH)
     Route: 048

REACTIONS (3)
  - Illness [Recovered/Resolved]
  - Intentional product misuse [Unknown]
  - Gait disturbance [Unknown]
